FAERS Safety Report 6435969-7 (Version None)
Quarter: 2009Q4

REPORT INFORMATION
  Report Type: 
  Country: None (occurrence: None)
  Receive Date: 20091111
  Receipt Date: 20091030
  Transmission Date: 20100525
  Serious: Yes (Other)
  Sender: FDA-Public Use
  Company Number: US-BAYER-200938148NA

PATIENT
  Sex: Female

DRUGS (4)
  1. MIRENA [Suspect]
     Indication: DRUG USE FOR UNKNOWN INDICATION
     Dosage: CONTINUOUS
     Route: 015
     Dates: start: 20070101, end: 20091028
  2. PROZAC [Concomitant]
  3. TOPAMAX [Concomitant]
  4. PROVIGIL [Concomitant]

REACTIONS (5)
  - DYSPAREUNIA [None]
  - FATIGUE [None]
  - HEADACHE [None]
  - MOOD ALTERED [None]
  - NARCOLEPSY [None]
